FAERS Safety Report 4766327-9 (Version None)
Quarter: 2005Q3

REPORT INFORMATION
  Report Type: 
  Country: None (occurrence: None)
  Receive Date: 20050912
  Receipt Date: 20050901
  Transmission Date: 20060218
  Serious: Yes (Hospitalization)
  Sender: FDA-Public Use
  Company Number: US-MERCK-0509USA00928

PATIENT
  Age: 59 Year
  Sex: Male
  Weight: 80 kg

DRUGS (18)
  1. VIOXX [Suspect]
     Indication: ARTHRITIS
     Route: 048
     Dates: start: 20021201, end: 20040130
  2. LISINOPRIL-BC [Concomitant]
     Indication: HYPERTENSION
     Route: 065
     Dates: start: 20030401, end: 20050301
  3. LISINOPRIL-BC [Concomitant]
     Route: 065
     Dates: start: 20030401, end: 20050301
  4. METOPROLOL-BC [Concomitant]
     Route: 065
     Dates: start: 20030401
  5. METOPROLOL-BC [Concomitant]
     Route: 065
     Dates: start: 20030401
  6. ASPIRIN [Concomitant]
     Route: 048
     Dates: start: 20030701
  7. ASPIRIN [Concomitant]
     Route: 048
     Dates: start: 20030701
  8. LOVASTATIN [Concomitant]
     Indication: BLOOD CHOLESTEROL INCREASED
     Route: 048
     Dates: start: 20021201
  9. LOVASTATIN [Concomitant]
     Route: 048
     Dates: start: 20021201
  10. ADVIL [Concomitant]
     Indication: PAIN
     Route: 048
     Dates: start: 19670101
  11. ADVIL [Concomitant]
     Route: 048
     Dates: start: 19670101
  12. PLAVIX [Concomitant]
     Indication: MYOCARDIAL INFARCTION
     Route: 048
     Dates: end: 20040129
  13. ETODOLAC [Concomitant]
     Indication: ARTHRALGIA
     Route: 065
     Dates: end: 20040101
  14. ETODOLAC [Concomitant]
     Route: 065
     Dates: end: 20040101
  15. RELAFEN [Concomitant]
     Indication: ARTHRALGIA
     Route: 065
     Dates: end: 20040201
  16. RELAFEN [Concomitant]
     Route: 065
     Dates: end: 20040201
  17. OMAPREN (OMEPRAZOLE) [Concomitant]
     Route: 065
     Dates: end: 20050301
  18. OMAPREN (OMEPRAZOLE) [Concomitant]
     Route: 065
     Dates: end: 20050301

REACTIONS (1)
  - MYOCARDIAL INFARCTION [None]
